FAERS Safety Report 7937913-X (Version None)
Quarter: 2011Q4

REPORT INFORMATION
  Report Type: 
  Country: None (occurrence: None)
  Receive Date: 20111123
  Receipt Date: 20111114
  Transmission Date: 20120403
  Serious: Yes (Hospitalization)
  Sender: FDA-Public Use
  Company Number: US-BAYER-2011-038837

PATIENT
  Age: 24 Year
  Sex: Female

DRUGS (2)
  1. YASMIN [Suspect]
     Indication: POLYCYSTIC OVARIES
     Dosage: UNK
     Dates: start: 20061001, end: 20080501
  2. HEB PRENATAL VITAMINS [Concomitant]
     Indication: VITAMIN SUPPLEMENTATION
     Dosage: UNK
     Dates: start: 20080601, end: 20090201

REACTIONS (6)
  - INJURY [None]
  - NAUSEA [None]
  - CHOLECYSTITIS CHRONIC [None]
  - ABDOMINAL PAIN [None]
  - PAIN [None]
  - BILE DUCT STONE [None]
